FAERS Safety Report 10336108 (Version 1)
Quarter: 2014Q3

REPORT INFORMATION
  Report Type: Spontaneous
  Country: US (occurrence: US)
  Receive Date: 20140723
  Receipt Date: 20140723
  Transmission Date: 20150326
  Serious: No
  Sender: FDA-Public Use
  Company Number: US-BRISTOL-MYERS SQUIBB COMPANY-19782432

PATIENT
  Age: 55 Year
  Sex: Female
  Weight: 133.78 kg

DRUGS (6)
  1. METOPROLOL [Concomitant]
     Active Substance: METOPROLOL
  2. HYDROCODONE [Concomitant]
     Active Substance: HYDROCODONE
  3. LANTUS [Concomitant]
     Active Substance: INSULIN GLARGINE
  4. SOMA [Concomitant]
     Active Substance: CARISOPRODOL
  5. COUMADIN [Suspect]
     Active Substance: WARFARIN SODIUM
     Dosage: AT NIGHT
     Dates: start: 2012
  6. PRILOSEC [Concomitant]
     Active Substance: OMEPRAZOLE MAGNESIUM

REACTIONS (1)
  - Blood test abnormal [Unknown]
